FAERS Safety Report 15963610 (Version 1)
Quarter: 2019Q1

REPORT INFORMATION
  Report Type: Spontaneous
  Country: FR (occurrence: FR)
  Receive Date: 20190214
  Receipt Date: 20190214
  Transmission Date: 20190417
  Serious: Yes (Hospitalization)
  Sender: FDA-Public Use
  Company Number: FR-TEVA-2019-FR-1009892

PATIENT
  Age: 80 Year
  Sex: Female

DRUGS (3)
  1. PREDNISOLONE. [Interacting]
     Active Substance: PREDNISOLONE
     Indication: BRONCHITIS
     Dosage: 60 MILLIGRAM DAILY;
     Route: 048
     Dates: start: 20181231, end: 20190102
  2. PREVISCAN 20 MG, COMPRIM? S?CABLE [Interacting]
     Active Substance: FLUINDIONE
     Indication: ATRIAL FIBRILLATION
     Dosage: 1 DOSAGE FORMS DAILY;
     Route: 048
     Dates: end: 20190109
  3. AMOXICILLINE [Suspect]
     Active Substance: AMOXICILLIN
     Indication: BRONCHITIS
     Dosage: 3 GRAM DAILY;
     Route: 048
     Dates: start: 20181231, end: 20190107

REACTIONS (2)
  - Drug interaction [Recovered/Resolved]
  - Intra-abdominal haematoma [Recovered/Resolved]

NARRATIVE: CASE EVENT DATE: 20190109
